FAERS Safety Report 6129941-4 (Version None)
Quarter: 2009Q1

REPORT INFORMATION
  Report Type: 
  Country: None (occurrence: None)
  Receive Date: 20090324
  Receipt Date: 20090309
  Transmission Date: 20090719
  Serious: Yes (Other)
  Sender: FDA-Public Use
  Company Number: JP-1049

PATIENT
  Sex: Female
  Weight: 58 kg

DRUGS (5)
  1. NIZORAL [Suspect]
     Indication: VULVOVAGINAL CANDIDIASIS
     Dosage: THERAPY DURATION: 8
     Route: 048
     Dates: start: 19940110, end: 19940117
  2. ACTIFED [Concomitant]
     Indication: RHINITIS ALLERGIC
     Route: 048
  3. ATARAX [Concomitant]
     Indication: URTICARIA
     Dosage: THERAPY DURATION: 6
     Route: 048
     Dates: start: 19931211, end: 19931216
  4. ISOMERIDE [Concomitant]
     Dosage: THERAPY DURATION: 3
     Route: 048
     Dates: start: 19931226, end: 19931228
  5. ZYRTEC [Concomitant]
     Indication: URTICARIA
     Dosage: THERAPY DURATION: 8
     Route: 048

REACTIONS (2)
  - ABORTION SPONTANEOUS [None]
  - DRUG EXPOSURE DURING PREGNANCY [None]
